FAERS Safety Report 5189203-9 (Version None)
Quarter: 2006Q4

REPORT INFORMATION
  Report Type: 
  Country: None (occurrence: None)
  Receive Date: 20061218
  Receipt Date: 20061208
  Transmission Date: 20070319
  Serious: Yes (Other)
  Sender: FDA-Public Use
  Company Number: 163-20785-06110189

PATIENT
  Age: 37 Year
  Sex: Female

DRUGS (1)
  1. THALOMID [Suspect]
     Indication: MYELOFIBROSIS
     Dosage: 50 MG, DAILY, ORAL
     Route: 048
     Dates: start: 20030101, end: 20060501

REACTIONS (2)
  - DRUG EXPOSURE BEFORE PREGNANCY [None]
  - UNINTENDED PREGNANCY [None]
